FAERS Safety Report 10226345 (Version 1)
Quarter: 2014Q2

REPORT INFORMATION
  Report Type: Other
  Country: US (occurrence: US)
  Receive Date: 20140609
  Receipt Date: 20140609
  Transmission Date: 20141212
  Serious: Yes (Hospitalization)
  Sender: FDA-Public Use
  Company Number: US-ACORDA-ACO_103771_2014

PATIENT
  Age: 26 Year
  Sex: Male
  Weight: 72.63 kg

DRUGS (1)
  1. AMPYRA [Suspect]
     Indication: MULTIPLE SCLEROSIS
     Dosage: 10 MG, Q 12 HRS
     Route: 048
     Dates: start: 201006

REACTIONS (4)
  - Abdominal pain [Unknown]
  - Vomiting [Unknown]
  - Multiple sclerosis relapse [Unknown]
  - Urinary tract infection [Unknown]
